FAERS Safety Report 6217297-8 (Version None)
Quarter: 2009Q2

REPORT INFORMATION
  Report Type: 
  Country: None (occurrence: None)
  Receive Date: 20090608
  Receipt Date: 20090604
  Transmission Date: 20091009
  Serious: Yes (Other)
  Sender: FDA-Public Use
  Company Number: US-PFIZER INC-2008159329

PATIENT
  Sex: Female

DRUGS (5)
  1. GEODON [Suspect]
     Indication: BIPOLAR DISORDER
     Dosage: UNKNOWN
     Dates: start: 20071219, end: 20081214
  2. LAMICTAL [Concomitant]
  3. LITHIUM CARBONATE [Concomitant]
     Dosage: UNK
  4. XANAX [Concomitant]
     Dosage: UNK
  5. AMBIEN [Concomitant]
     Dosage: UNK

REACTIONS (3)
  - DISCOMFORT [None]
  - RASH [None]
  - SWELLING [None]
